FAERS Safety Report 15946540 (Version 3)
Quarter: 2019Q2

REPORT INFORMATION
  Report Type: Spontaneous
  Country: US (occurrence: US)
  Receive Date: 20190211
  Receipt Date: 20190417
  Transmission Date: 20190711
  Serious: Yes (Hospitalization, Other)
  Sender: FDA-Public Use
  Company Number: US-ASTRAZENECA-2018SE98821

PATIENT
  Age: 20277 Day
  Sex: Male
  Weight: 115.9 kg

DRUGS (27)
  1. NEXIUM [Suspect]
     Active Substance: ESOMEPRAZOLE MAGNESIUM
     Route: 048
  2. FLUTICASONE. [Concomitant]
     Active Substance: FLUTICASONE
  3. CLOPIDOGREL [Concomitant]
     Active Substance: CLOPIDOGREL BISULFATE
  4. ZANTAC [Concomitant]
     Active Substance: RANITIDINE HYDROCHLORIDE
     Dates: start: 200609
  5. NASONEX [Concomitant]
     Active Substance: MOMETASONE FUROATE
  6. TAGAMET [Concomitant]
     Active Substance: CIMETIDINE
     Dates: start: 200609
  7. TAMSULOSIN [Concomitant]
     Active Substance: TAMSULOSIN
  8. ATORVASTATIN [Concomitant]
     Active Substance: ATORVASTATIN
     Indication: BLOOD CHOLESTEROL
  9. RABEPRAZOLE [Suspect]
     Active Substance: RABEPRAZOLE
     Route: 065
  10. SPIRIVA [Concomitant]
     Active Substance: TIOTROPIUM BROMIDE MONOHYDRATE
  11. DULOXETINE. [Concomitant]
     Active Substance: DULOXETINE
  12. LOSARTAN. [Concomitant]
     Active Substance: LOSARTAN
  13. AMLODIPINE [Concomitant]
     Active Substance: AMLODIPINE BESYLATE
  14. ATORVASTATIN [Concomitant]
     Active Substance: ATORVASTATIN
  15. METOPROLOL SUCCINATE. [Concomitant]
     Active Substance: METOPROLOL SUCCINATE
  16. AZITHROMYCIN ANHYDROUS. [Concomitant]
     Active Substance: AZITHROMYCIN ANHYDROUS
     Indication: ANTIBIOTIC LEVEL
  17. NEXIUM [Suspect]
     Active Substance: ESOMEPRAZOLE MAGNESIUM
     Route: 048
     Dates: start: 2014, end: 2018
  18. PANTOPRAZOLE [Suspect]
     Active Substance: PANTOPRAZOLE
     Route: 065
     Dates: start: 20090309, end: 20121217
  19. PREDNISONE. [Concomitant]
     Active Substance: PREDNISONE
  20. METOPROLOL. [Concomitant]
     Active Substance: METOPROLOL
     Indication: BLOOD PRESSURE MEASUREMENT
  21. RANITIDINE. [Concomitant]
     Active Substance: RANITIDINE
     Dates: start: 200609
  22. ASPIRIN. [Concomitant]
     Active Substance: ASPIRIN
  23. IBUPROFEN. [Concomitant]
     Active Substance: IBUPROFEN
  24. PANTOPRAZOLE [Concomitant]
     Active Substance: PANTOPRAZOLE
  25. PEPCID [Concomitant]
     Active Substance: FAMOTIDINE
  26. GABAPENTIN. [Concomitant]
     Active Substance: GABAPENTIN
  27. GEMFIBROZIL. [Concomitant]
     Active Substance: GEMFIBROZIL

REACTIONS (3)
  - Acute kidney injury [Unknown]
  - Chronic kidney disease [Not Recovered/Not Resolved]
  - Renal failure [Not Recovered/Not Resolved]

NARRATIVE: CASE EVENT DATE: 20151103
